FAERS Safety Report 9382307 (Version 1)
Quarter: 2013Q3

REPORT INFORMATION
  Report Type: Spontaneous
  Country: US (occurrence: None)
  Receive Date: 20130702
  Receipt Date: 20130702
  Transmission Date: 20140515
  Serious: Yes (Life-Threatening, Other)
  Sender: FDA-Public Use
  Company Number: None

PATIENT
  Age: 61 Year
  Sex: Female
  Weight: 72.58 kg

DRUGS (1)
  1. MULTAQ [Suspect]
     Route: 048
     Dates: start: 20130212, end: 20130214

REACTIONS (3)
  - Dyspnoea [None]
  - Myalgia [None]
  - Urticaria [None]
